FAERS Safety Report 4595263-6 (Version None)
Quarter: 2005Q1

REPORT INFORMATION
  Report Type: 
  Country: None (occurrence: None)
  Receive Date: 20050225
  Receipt Date: 20041228
  Transmission Date: 20050727
  Serious: Yes (Other)
  Sender: FDA-Public Use
  Company Number: 2004115658

PATIENT
  Age: 61 Year
  Sex: Female
  Weight: 89.3586 kg

DRUGS (4)
  1. CELEBREX [Suspect]
     Indication: ARTHRITIS
     Dosage: 200 MG (200 MG , 1 IN 1D), ORAL
     Route: 048
     Dates: start: 20030101
  2. PIOGLITAZONE (PIOGLITAZONE0 [Concomitant]
  3. METFORMIN HCL [Concomitant]
  4. INSULIN [Concomitant]

REACTIONS (11)
  - ABDOMINAL PAIN UPPER [None]
  - ARTHRITIS [None]
  - CONDITION AGGRAVATED [None]
  - CRYING [None]
  - DIARRHOEA [None]
  - ECONOMIC PROBLEM [None]
  - HYPOAESTHESIA [None]
  - IMPAIRED WORK ABILITY [None]
  - NERVOUSNESS [None]
  - PARAESTHESIA [None]
  - STRESS [None]
